FAERS Safety Report 21348606 (Version 6)
Quarter: 2023Q2

REPORT INFORMATION
  Report Type: Report from Study
  Country: CA (occurrence: CA)
  Receive Date: 20220919
  Receipt Date: 20230410
  Transmission Date: 20230721
  Serious: Yes (Hospitalization, Other)
  Sender: FDA-Public Use
  Company Number: CA-JNJFOC-20220927492

PATIENT
  Age: 15 Year
  Sex: Male
  Weight: 65.830 kg

DRUGS (1)
  1. REMICADE [Suspect]
     Active Substance: INFLIXIMAB
     Indication: Colitis ulcerative
     Dosage: ON 13-SEP-2022, THE PATIENT RECEIVED 3RD DOSE OF REMICADE INFUSION AT THE DOSE OF 600 MG.?ON 12-OCT-
     Route: 042
     Dates: start: 20220726

REACTIONS (4)
  - Clostridium difficile infection [Unknown]
  - Colitis ulcerative [Unknown]
  - Inappropriate schedule of product administration [Unknown]
  - Therapeutic product effect decreased [Unknown]

NARRATIVE: CASE EVENT DATE: 20220908
